FAERS Safety Report 13265998 (Version 2)
Quarter: 2017Q3

REPORT INFORMATION
  Report Type: Spontaneous
  Country: KR (occurrence: KR)
  Receive Date: 20170223
  Receipt Date: 20170713
  Transmission Date: 20171127
  Serious: Yes (Other)
  Sender: FDA-Public Use
  Company Number: KR-009507513-1702KOR009665

PATIENT
  Age: 56 Year
  Sex: Male
  Weight: 70.4 kg

DRUGS (24)
  1. SANCUSO [Concomitant]
     Active Substance: GRANISETRON
     Indication: PROPHYLAXIS OF NAUSEA AND VOMITING
     Dosage: STRENGTH: 80.2 X 66.6 MM2, 1 EA, QD
     Route: 062
     Dates: start: 20161024, end: 20161030
  2. CENTRUM (MINERALS (UNSPECIFIED) (+) VITAMINS (UNSPECIFIED)) [Concomitant]
     Indication: VITAMIN SUPPLEMENTATION
  3. CURAN [Concomitant]
     Active Substance: RANITIDINE HYDROCHLORIDE
     Indication: DYSPEPSIA
     Dosage: STRENGTH:50MG/2 ML,  50 MG, ONCE
     Route: 042
     Dates: start: 20161025, end: 20161025
  4. LASIX [Concomitant]
     Active Substance: FUROSEMIDE
     Dosage: 20 MG, ONCE, STRENGTH: 20 MG/2 ML
     Route: 042
     Dates: start: 20161115, end: 20161115
  5. EMEND (FOSAPREPITANT DIMEGLUMINE) [Suspect]
     Active Substance: FOSAPREPITANT DIMEGLUMINE
     Dosage: 150 MG, ONCE
     Route: 042
     Dates: start: 20161115, end: 20161115
  6. DEXAMETHASONE SODIUM PHOSPHATE. [Concomitant]
     Active Substance: DEXAMETHASONE SODIUM PHOSPHATE
     Indication: PROPHYLAXIS OF NAUSEA AND VOMITING
     Dosage: STRENGTH: 5 MG/ML, 10 MG, ONCE
     Route: 042
     Dates: start: 20161115, end: 20161115
  7. LASIX [Concomitant]
     Active Substance: FUROSEMIDE
     Dosage: 20 MG, ONCE, STRENGTH: 20 MG/2 ML
     Route: 042
     Dates: start: 20161208, end: 20161208
  8. EMEND (FOSAPREPITANT DIMEGLUMINE) [Suspect]
     Active Substance: FOSAPREPITANT DIMEGLUMINE
     Indication: PROPHYLAXIS OF NAUSEA AND VOMITING
     Dosage: 150 MG, ONCE
     Route: 042
     Dates: start: 20161025, end: 20161025
  9. CISPLAN [Concomitant]
     Active Substance: CISPLATIN
     Indication: LARYNGEAL CANCER
     Dosage: 176 MG, ONCE, CYCLE 1 STRENGTH: 50MG/100ML
     Route: 042
     Dates: start: 20161025, end: 20161025
  10. CENTRUM (MINERALS (UNSPECIFIED) (+) VITAMINS (UNSPECIFIED)) [Concomitant]
     Indication: MINERAL SUPPLEMENTATION
     Dosage: 1 TABLET, ONCE
     Route: 048
     Dates: start: 20161025, end: 20161214
  11. CISPLAN [Concomitant]
     Active Substance: CISPLATIN
     Dosage: 173 MG, ONCE, CYCLE 2 STRENGTH: 50MG/100ML
     Route: 042
     Dates: start: 20161115, end: 20161115
  12. DEXAMETHASONE SODIUM PHOSPHATE. [Concomitant]
     Active Substance: DEXAMETHASONE SODIUM PHOSPHATE
     Indication: DYSPEPSIA
     Dosage: STRENGTH: 5 MG/ML, 12 MG, ONCE
     Route: 042
     Dates: start: 20161025, end: 20161025
  13. CURAN [Concomitant]
     Active Substance: RANITIDINE HYDROCHLORIDE
     Dosage: STRENGTH:50MG/2 ML,  50 MG, QD
     Route: 042
     Dates: start: 20161214, end: 20161216
  14. DEXAMETHASONE SODIUM PHOSPHATE. [Concomitant]
     Active Substance: DEXAMETHASONE SODIUM PHOSPHATE
     Dosage: STRENGTH: 5 MG/ML, 5 MG, ONCE
     Route: 042
     Dates: start: 20161214, end: 20161217
  15. CISPLAN [Concomitant]
     Active Substance: CISPLATIN
     Dosage: 166 MG, ONCE, CYCLE 3 STRENGTH: 50MG/100ML
     Route: 042
     Dates: start: 20161208, end: 20161208
  16. DEXAMETHASONE SODIUM PHOSPHATE. [Concomitant]
     Active Substance: DEXAMETHASONE SODIUM PHOSPHATE
     Dosage: STRENGTH: 5 MG/ML, 10 MG, QD
     Route: 042
     Dates: start: 20161208, end: 20161209
  17. CURAN [Concomitant]
     Active Substance: RANITIDINE HYDROCHLORIDE
     Dosage: STRENGTH:50MG/2 ML,  50 MG, QD
     Route: 042
     Dates: start: 20161115, end: 20161118
  18. CURAN [Concomitant]
     Active Substance: RANITIDINE HYDROCHLORIDE
     Dosage: STRENGTH:50MG/2 ML,  50 MG, QD
     Route: 042
     Dates: start: 20161208, end: 20161209
  19. DEXAMETHASONE. [Concomitant]
     Active Substance: DEXAMETHASONE
     Indication: DYSPEPSIA
     Dosage: 4 MG, BID
     Route: 048
     Dates: start: 20161026, end: 20161028
  20. DEXAMETHASONE. [Concomitant]
     Active Substance: DEXAMETHASONE
     Dosage: 4 MG, BID
     Route: 048
     Dates: start: 20161210, end: 20161211
  21. SANCUSO [Concomitant]
     Active Substance: GRANISETRON
     Dosage: STRENGTH: 80.2 X 66.6 MM2, 1 EA, QD
     Route: 062
     Dates: start: 20161114, end: 20161120
  22. LASIX [Concomitant]
     Active Substance: FUROSEMIDE
     Indication: PROPHYLAXIS
     Dosage: 20 MG, ONCE, STRENGTH: 20 MG/2 ML
     Route: 042
     Dates: start: 20161025, end: 20161025
  23. EMEND (FOSAPREPITANT DIMEGLUMINE) [Suspect]
     Active Substance: FOSAPREPITANT DIMEGLUMINE
     Dosage: 150 MG, ONCE
     Route: 042
     Dates: start: 20161208, end: 20161208
  24. SANCUSO [Concomitant]
     Active Substance: GRANISETRON
     Dosage: STRENGTH: 80.2 X 66.6 MM2, 1 EA, QD
     Route: 062
     Dates: start: 20161207, end: 20161213

REACTIONS (10)
  - Electrocardiogram ST segment elevation [Recovered/Resolved]
  - Pyrexia [Recovered/Resolved]
  - Radiation oesophagitis [Recovered/Resolved]
  - Herpes simplex [Recovered/Resolved]
  - Vomiting [Recovered/Resolved]
  - Nausea [Recovered/Resolved]
  - Hiccups [Recovered/Resolved]
  - Hiccups [Recovered/Resolved]
  - Laryngitis [Recovered/Resolved]
  - Productive cough [Recovered/Resolved]

NARRATIVE: CASE EVENT DATE: 20161026
